FAERS Safety Report 18039764 (Version 2)
Quarter: 2020Q4

REPORT INFORMATION
  Report Type: Spontaneous
  Country: CA (occurrence: CA)
  Receive Date: 20200717
  Receipt Date: 20201016
  Transmission Date: 20210113
  Serious: Yes (Other)
  Sender: FDA-Public Use
  Company Number: CA-PFIZER INC-2020268137

PATIENT
  Sex: Female
  Weight: 45 kg

DRUGS (5)
  1. MYCOPHENOLATE [Suspect]
     Active Substance: MYCOPHENOLIC ACID
     Dosage: UNK
     Route: 065
  2. RITUXIMAB. [Suspect]
     Active Substance: RITUXIMAB
     Dosage: 375 MG, 2 EVERY 1 WEEKS
     Route: 065
  3. AZATHIOPRINE. [Suspect]
     Active Substance: AZATHIOPRINE
     Dosage: UNK
     Route: 065
  4. METHOTREXATE SODIUM. [Suspect]
     Active Substance: METHOTREXATE SODIUM
     Dosage: 12.5 MG
     Route: 058
  5. XELJANZ [Suspect]
     Active Substance: TOFACITINIB CITRATE
     Indication: DERMATOMYOSITIS
     Dosage: 5 MG, 2 EVERY 1 DAYS

REACTIONS (10)
  - Drug ineffective [Unknown]
  - Off label use [Unknown]
  - Transaminases increased [Unknown]
  - Inflammation [Unknown]
  - Nausea [Unknown]
  - Treatment failure [Unknown]
  - Product use issue [Unknown]
  - Cytopenia [Unknown]
  - Product use in unapproved indication [Unknown]
  - Diarrhoea [Unknown]
